FAERS Safety Report 5615309-3 (Version None)
Quarter: 2008Q1

REPORT INFORMATION
  Report Type: 
  Country: None (occurrence: None)
  Receive Date: 20080204
  Receipt Date: 20080204
  Transmission Date: 20080703
  Serious: Yes (Life-Threatening, Hospitalization)
  Sender: FDA-Public Use
  Company Number: None

PATIENT
  Age: 62 Year
  Sex: Female
  Weight: 53 kg

DRUGS (3)
  1. DDAVP (NEEDS NO REFRIGERATION) [Suspect]
     Indication: DIABETES INSIPIDUS
     Dosage: 10 MCG ONE TIME ONLY IV
     Route: 042
     Dates: start: 20080119
  2. CISPLATIN [Concomitant]
  3. ETOPOSIDE [Concomitant]

REACTIONS (3)
  - BLOOD SODIUM ABNORMAL [None]
  - BLOOD SODIUM DECREASED [None]
  - GRAND MAL CONVULSION [None]
